FAERS Safety Report 8729519 (Version 4)
Quarter: 2025Q2

REPORT INFORMATION
  Report Type: Spontaneous
  Country: US (occurrence: US)
  Receive Date: 20120817
  Receipt Date: 20250425
  Transmission Date: 20250717
  Serious: Yes (Hospitalization, Other)
  Sender: ROCHE
  Company Number: US-ROCHE-1102214

PATIENT
  Age: 81 Year
  Sex: Female

DRUGS (2)
  1. BONIVA [Suspect]
     Active Substance: IBANDRONATE SODIUM
     Indication: Osteoporosis
     Route: 042
     Dates: start: 2001, end: 2010
  2. FOSAMAX [Suspect]
     Active Substance: ALENDRONATE SODIUM
     Indication: Osteoporosis
     Route: 065
     Dates: start: 2001, end: 2010

REACTIONS (10)
  - Femur fracture [Unknown]
  - Emotional distress [Unknown]
  - Headache [Unknown]
  - Fall [Unknown]
  - Contusion [Unknown]
  - Upper respiratory tract infection [Recovering/Resolving]
  - Herpes zoster [Unknown]
  - Bursitis [Recovered/Resolved]
  - Fracture displacement [Unknown]
  - Hyponatraemia [Recovered/Resolved]

NARRATIVE: CASE EVENT DATE: 20080101
